FAERS Safety Report 7427192-4 (Version None)
Quarter: 2011Q2

REPORT INFORMATION
  Report Type: 
  Country: None (occurrence: None)
  Receive Date: 20110420
  Receipt Date: 20110406
  Transmission Date: 20111010
  Serious: Yes (Other)
  Sender: FDA-Public Use
  Company Number: BR-GENENTECH-310225

PATIENT
  Sex: Female
  Weight: 65 kg

DRUGS (10)
  1. PREDNISONE [Concomitant]
     Indication: PRODUCT USED FOR UNKNOWN INDICATION
     Dosage: 5 MG, UNK
  2. CYMBALTA [Suspect]
     Indication: PRODUCT USED FOR UNKNOWN INDICATION
     Dosage: 70 MG, UNK
     Route: 065
  3. METHOTREXATE [Concomitant]
     Indication: PRODUCT USED FOR UNKNOWN INDICATION
     Dosage: 2.5 MG, UNK
  4. RITUXIMAB [Suspect]
     Indication: RHEUMATOID ARTHRITIS
     Dosage: 1000 MG, UNK
     Route: 042
     Dates: start: 20100621
  5. ENALAPRIL MALEATE [Concomitant]
     Indication: PRODUCT USED FOR UNKNOWN INDICATION
     Dosage: 20 MG, BID
  6. RITUXIMAB [Suspect]
     Dosage: UNK
     Route: 050
     Dates: end: 20110301
  7. FOLIC ACID [Concomitant]
     Indication: PRODUCT USED FOR UNKNOWN INDICATION
     Dosage: UNK
  8. RITUXIMAB [Suspect]
     Dosage: UNK
     Route: 042
     Dates: start: 20100705, end: 20100705
  9. OSTEOFORM [Concomitant]
     Indication: PRODUCT USED FOR UNKNOWN INDICATION
     Dosage: 70 MG, UNK
  10. CALCIUM [Concomitant]
     Indication: PRODUCT USED FOR UNKNOWN INDICATION

REACTIONS (15)
  - DIARRHOEA [None]
  - INSOMNIA [None]
  - FIBROMYALGIA [None]
  - RASH [None]
  - DEPRESSION [None]
  - NAUSEA [None]
  - SWELLING FACE [None]
  - BLOOD PRESSURE INCREASED [None]
  - ARTHRALGIA [None]
  - DYSPNOEA [None]
  - THYROID DISORDER [None]
  - MALAISE [None]
  - HEADACHE [None]
  - PAIN [None]
  - HYPERTENSIVE CRISIS [None]
